FAERS Safety Report 8918466 (Version 1)
Quarter: 2012Q4

REPORT INFORMATION
  Report Type: 
  Country: US (occurrence: US)
  Receive Date: 20121120
  Receipt Date: 20121120
  Transmission Date: 20130627
  Serious: No
  Sender: FDA-Public Use
  Company Number: US-ASTRAZENECA-2012SE17939

PATIENT
  Age: 63 Year
  Sex: Male
  Weight: 6.8 kg

DRUGS (2)
  1. NEXIUM [Suspect]
     Route: 048
  2. ZANTAC [Concomitant]

REACTIONS (4)
  - Erosive oesophagitis [Not Recovered/Not Resolved]
  - Drug clearance increased [Unknown]
  - Dry mouth [Unknown]
  - Off label use [Unknown]
